FAERS Safety Report 19313642 (Version 1)
Quarter: 2021Q2

REPORT INFORMATION
  Report Type: Other
  Country: GB (occurrence: GB)
  Receive Date: 20210527
  Receipt Date: 20210527
  Transmission Date: 20210717
  Serious: Yes (Hospitalization)
  Sender: FDA-Public Use
  Company Number: GB-STRIDES ARCOLAB LIMITED-2021SP005817

PATIENT
  Age: 28 Year
  Sex: Female

DRUGS (3)
  1. ZAPAIN [Suspect]
     Active Substance: ACETAMINOPHEN\CODEINE PHOSPHATE
     Indication: BACK PAIN
     Dosage: UNK
     Route: 065
  2. GABAPENTIN. [Suspect]
     Active Substance: GABAPENTIN
     Indication: BACK PAIN
     Dosage: UNK
     Route: 065
  3. IMRALDI [Suspect]
     Active Substance: ADALIMUMAB
     Indication: CROHN^S DISEASE
     Dosage: 40 MILLIGRAM PER 2 WEEK
     Route: 058
     Dates: start: 20210427

REACTIONS (3)
  - Back pain [Unknown]
  - Infrequent bowel movements [Unknown]
  - Hypoaesthesia [Unknown]
